FAERS Safety Report 20216061 (Version 1)
Quarter: 2021Q4

REPORT INFORMATION
  Report Type: Spontaneous
  Country: FR (occurrence: FR)
  Receive Date: 20211222
  Receipt Date: 20211222
  Transmission Date: 20220303
  Serious: Yes (Hospitalization, Other)
  Sender: FDA-Public Use
  Company Number: FR-SANOFI US-2021SA416131

PATIENT
  Age: 66 Year
  Sex: Male

DRUGS (14)
  1. BETAMETHASONE [Suspect]
     Active Substance: BETAMETHASONE
     Indication: Rheumatoid arthritis
     Dosage: 7 MG IN THE LEFT KNEE
     Route: 014
     Dates: start: 198607
  2. BETAMETHASONE [Suspect]
     Active Substance: BETAMETHASONE
     Dosage: 7 MG IN THE LEFT KNEE
     Route: 014
     Dates: start: 198701
  3. BETAMETHASONE [Suspect]
     Active Substance: BETAMETHASONE
     Dosage: 7 MG IN THE RIGHT KNEE
     Route: 014
     Dates: start: 198701
  4. CORTIVAZOL [Suspect]
     Active Substance: CORTIVAZOL
     Indication: Rheumatoid arthritis
     Dosage: 3.75 MG ON RIGHT  KNEE
     Route: 014
     Dates: start: 198605
  5. PREDNISOLONE [Suspect]
     Active Substance: PREDNISOLONE
     Indication: Cutaneous vasculitis
     Dosage: 20 MG/DAY
     Route: 048
     Dates: start: 1987, end: 1987
  6. TRIAMCINOLONE ACETONIDE [Suspect]
     Active Substance: TRIAMCINOLONE ACETONIDE
     Indication: Rheumatoid arthritis
     Dosage: 40 MG IN LEFT  WRIST
     Route: 014
     Dates: start: 198602
  7. TRIAMCINOLONE ACETONIDE [Suspect]
     Active Substance: TRIAMCINOLONE ACETONIDE
     Dosage: 10 MG IN LEFT 1ST  METACARPOPHALANGEAL JOINT
     Route: 014
     Dates: start: 198602
  8. TRIAMCINOLONE ACETONIDE [Suspect]
     Active Substance: TRIAMCINOLONE ACETONIDE
     Dosage: 10 MG IN LEFT 2ND  METACARPOPHALANGEAL JOINT
     Route: 014
     Dates: start: 198602
  9. TRIAMCINOLONE ACETONIDE [Suspect]
     Active Substance: TRIAMCINOLONE ACETONIDE
     Dosage: 40 MG IN RIGHT  ELBOW
     Route: 014
     Dates: start: 198604
  10. TRIAMCINOLONE ACETONIDE [Suspect]
     Active Substance: TRIAMCINOLONE ACETONIDE
     Dosage: 10 MG IN 3RD PROXIMAL INTERPHALANGEAL JOINT
     Route: 014
     Dates: start: 198604
  11. TRIAMCINOLONE ACETONIDE [Suspect]
     Active Substance: TRIAMCINOLONE ACETONIDE
     Dosage: 10MG IN RIGHT 4TH PROXIMAL INTERPHALANGEAL JOINT
     Route: 014
     Dates: start: 198604
  12. TRIAMCINOLONE ACETONIDE [Suspect]
     Active Substance: TRIAMCINOLONE ACETONIDE
     Dosage: 40 MG IN RIGHT  SHOULDER
     Route: 014
     Dates: start: 198611
  13. TRIAMCINOLONE ACETONIDE [Suspect]
     Active Substance: TRIAMCINOLONE ACETONIDE
     Dosage: 40 MG IN LEFT SHOULDER
     Route: 014
     Dates: start: 198702
  14. GOLD [Concomitant]
     Active Substance: GOLD
     Indication: Rheumatoid arthritis
     Dosage: UNK
     Dates: start: 198607

REACTIONS (4)
  - Kaposi^s sarcoma [Recovered/Resolved]
  - Skin mass [Recovering/Resolving]
  - Skin lesion [Recovering/Resolving]
  - Macule [Recovering/Resolving]

NARRATIVE: CASE EVENT DATE: 19870301
